FAERS Safety Report 7620030-6 (Version None)
Quarter: 2011Q3

REPORT INFORMATION
  Report Type: 
  Country: None (occurrence: None)
  Receive Date: 20110719
  Receipt Date: 20110714
  Transmission Date: 20111222
  Serious: No
  Sender: FDA-Public Use
  Company Number: US-PFIZER INC-2011160721

PATIENT
  Sex: Female

DRUGS (4)
  1. DILAUDID [Suspect]
     Indication: PAIN
     Dosage: UNK
  2. FLURAZEPAM [Concomitant]
     Indication: MUSCLE SPASMS
     Dosage: UNK
  3. LIPITOR [Suspect]
     Dosage: LARGER DOSE THAN 10MG
  4. OXYCONTIN [Suspect]
     Indication: PAIN
     Dosage: 30MG FOUR TIMES A DAY

REACTIONS (3)
  - ABDOMINAL PAIN UPPER [None]
  - DRUG INEFFECTIVE [None]
  - NAUSEA [None]
